APPROVED DRUG PRODUCT: GUAIFENESIN
Active Ingredient: GUAIFENESIN
Strength: 1.2GM
Dosage Form/Route: TABLET, EXTENDED RELEASE;ORAL
Application: A215932 | Product #002
Applicant: DR REDDYS LABORATORIES LTD
Approved: Mar 15, 2022 | RLD: No | RS: No | Type: OTC